FAERS Safety Report 25645541 (Version 1)
Quarter: 2025Q3

REPORT INFORMATION
  Report Type: Report from Study
  Country: US (occurrence: US)
  Receive Date: 20250805
  Receipt Date: 20250805
  Transmission Date: 20251020
  Serious: Yes (Other)
  Sender: AMGEN
  Company Number: US-AMGEN-USASL2025150114

PATIENT
  Age: 50 Year
  Sex: Female

DRUGS (1)
  1. AIMOVIG [Suspect]
     Active Substance: ERENUMAB-AOOE
     Indication: Migraine prophylaxis
     Dosage: UNK, QMO
     Route: 058

REACTIONS (4)
  - Gastric ulcer [Unknown]
  - Nephrolithiasis [Recovering/Resolving]
  - Migraine [Unknown]
  - Nausea [Unknown]

NARRATIVE: CASE EVENT DATE: 20250701
